FAERS Safety Report 12079523 (Version 1)
Quarter: 2016Q1

REPORT INFORMATION
  Report Type: Spontaneous
  Country: US (occurrence: None)
  Receive Date: 20160212
  Receipt Date: 20160212
  Transmission Date: 20160526
  Serious: Yes (Hospitalization)
  Sender: FDA-Public Use
  Company Number: None

PATIENT
  Age: 32 Year
  Sex: Female
  Weight: 65.77 kg

DRUGS (6)
  1. FLUOXETINE [Concomitant]
     Active Substance: FLUOXETINE HYDROCHLORIDE
  2. VITAMIN D3 [Suspect]
     Active Substance: CHOLECALCIFEROL
  3. CALCIUM VITAMIN D [Concomitant]
     Active Substance: CALCIUM\VITAMIN D
  4. VITAMIN C [Concomitant]
     Active Substance: ASCORBIC ACID
  5. CRANBERRY PILLS [Concomitant]
  6. FLUOXETINE [Suspect]
     Active Substance: FLUOXETINE HYDROCHLORIDE
     Indication: MAJOR DEPRESSION
     Dosage: 1 PILL
     Route: 048
     Dates: start: 20150509, end: 20160119

REACTIONS (4)
  - Renal pain [None]
  - Urinary tract infection [None]
  - Pain [None]
  - Blood heavy metal increased [None]

NARRATIVE: CASE EVENT DATE: 20150509
